FAERS Safety Report 10267888 (Version 1)
Quarter: 2014Q2

REPORT INFORMATION
  Report Type: Spontaneous
  Country: FR (occurrence: FR)
  Receive Date: 20140630
  Receipt Date: 20140630
  Transmission Date: 20141212
  Serious: Yes (Life-Threatening)
  Sender: FDA-Public Use
  Company Number: FR-009507513-1406FRA013855

PATIENT
  Age: 18 Year
  Sex: Female

DRUGS (2)
  1. CELESTENE [Suspect]
     Indication: ASTHMA
     Dosage: 1 DF, QD
     Route: 048
     Dates: start: 20140504, end: 20140504
  2. VENTOLINE (ALBUTEROL) [Concomitant]

REACTIONS (1)
  - Anaphylactic shock [Recovered/Resolved]
